FAERS Safety Report 14126602 (Version 2)
Quarter: 2018Q4

REPORT INFORMATION
  Report Type: Spontaneous
  Country: US (occurrence: US)
  Receive Date: 20171025
  Receipt Date: 20181115
  Transmission Date: 20190204
  Serious: Yes (Hospitalization)
  Sender: FDA-Public Use
  Company Number: US-BAUSCH-BL-2017-014214

PATIENT
  Age: 70 Year
  Sex: Female
  Weight: 44.7 kg

DRUGS (12)
  1. NIVOLUMAB [Suspect]
     Active Substance: NIVOLUMAB
     Dosage: QOW(EVERY OTHER WEEK), AS STANDARD CARE
     Route: 042
     Dates: start: 20170313
  2. INCB024360(EPACADOSTAT) [Suspect]
     Active Substance: EPACADOSTAT
     Route: 048
     Dates: start: 20170221, end: 20170223
  3. ATIVAN [Suspect]
     Active Substance: LORAZEPAM
     Indication: ANXIETY
     Dosage: PRN (WHEN NECESSARY)
     Route: 048
     Dates: start: 20170219, end: 2017
  4. NIVOLUMAB [Suspect]
     Active Substance: NIVOLUMAB
     Indication: NON-SMALL CELL LUNG CANCER
     Dosage: QOW(EVERY OTHER WEEK)
     Route: 042
     Dates: start: 20170130, end: 20170213
  5. OXYCODONE [Concomitant]
     Active Substance: OXYCODONE
     Indication: PRODUCT USED FOR UNKNOWN INDICATION
     Dates: start: 20170130
  6. NIVOLUMAB [Suspect]
     Active Substance: NIVOLUMAB
     Dosage: QOW(EVERY OTHER WEEK)
     Route: 065
     Dates: start: 20170221, end: 20170308
  7. INCB024360(EPACADOSTAT) [Suspect]
     Active Substance: EPACADOSTAT
     Indication: NON-SMALL CELL LUNG CANCER
     Route: 048
     Dates: start: 20170130, end: 20170209
  8. KLONOPIN [Concomitant]
     Active Substance: CLONAZEPAM
     Indication: PRODUCT USED FOR UNKNOWN INDICATION
     Dates: start: 20161027
  9. ATIVAN [Suspect]
     Active Substance: LORAZEPAM
     Route: 042
     Dates: start: 20170308, end: 2017
  10. ATIVAN [Suspect]
     Active Substance: LORAZEPAM
     Dosage: AT BEDTIME
     Route: 065
     Dates: start: 20170310, end: 201703
  11. LYRICA [Concomitant]
     Active Substance: PREGABALIN
     Indication: PRODUCT USED FOR UNKNOWN INDICATION
     Dates: start: 20170209, end: 20170211
  12. ZYPREXA [Concomitant]
     Active Substance: OLANZAPINE
     Indication: PRODUCT USED FOR UNKNOWN INDICATION
     Dates: start: 20170302

REACTIONS (3)
  - Fatigue [Unknown]
  - Somnolence [Unknown]
  - Generalised tonic-clonic seizure [Recovered/Resolved]

NARRATIVE: CASE EVENT DATE: 20170223
